FAERS Safety Report 8671875 (Version 3)
Quarter: 2012Q4

REPORT INFORMATION
  Report Type: 
  Country: IT (occurrence: IT)
  Receive Date: 20120718
  Receipt Date: 20121126
  Transmission Date: 20130627
  Serious: Yes (Hospitalization)
  Sender: FDA-Public Use
  Company Number: IT-ABBOTT-12P-083-0955838-00

PATIENT
  Age: 31 Year
  Sex: Female

DRUGS (5)
  1. DEPAKINE CHRONO TABLETS [Suspect]
     Indication: BORDERLINE PERSONALITY DISORDER
     Route: 048
  2. DEPAKINE CHRONO TABLETS [Suspect]
     Indication: INTENTIONAL OVERDOSE
     Route: 048
     Dates: start: 20120706, end: 20120706
  3. STILNOX [Suspect]
     Indication: PRODUCT USED FOR UNKNOWN INDICATION
     Route: 048
     Dates: start: 20120706, end: 20120706
  4. ABILIFY [Suspect]
     Indication: BORDERLINE PERSONALITY DISORDER
     Route: 048
  5. ABILIFY [Suspect]
     Indication: INTENTIONAL OVERDOSE
     Route: 048
     Dates: start: 20120706, end: 20120706

REACTIONS (2)
  - Sopor [Recovering/Resolving]
  - Intentional overdose [Unknown]
